FAERS Safety Report 5384168-9 (Version None)
Quarter: 2007Q3

REPORT INFORMATION
  Report Type: 
  Country: None (occurrence: None)
  Receive Date: 20070709
  Receipt Date: 20060920
  Transmission Date: 20080115
  Serious: Yes (Hospitalization)
  Sender: FDA-Public Use
  Company Number: US-2005-028264

PATIENT

DRUGS (1)
  1. ULTRAVIST 300 [Suspect]

REACTIONS (1)
  - CHOKING SENSATION [None]
